FAERS Safety Report 16974386 (Version 1)
Quarter: 2019Q4

REPORT INFORMATION
  Report Type: Spontaneous
  Country: US (occurrence: US)
  Receive Date: 20191030
  Receipt Date: 20191030
  Transmission Date: 20200122
  Serious: Yes (Other)
  Sender: FDA-Public Use
  Company Number: US-GLAXOSMITHKLINE-US2019194438

PATIENT

DRUGS (1)
  1. EXCEDRIN PM TRIPLE ACTION CAPLETS [Suspect]
     Active Substance: ACETAMINOPHEN\ASPIRIN\DIPHENHYDRAMINE CITRATE
     Indication: HEADACHE
     Dosage: UNK

REACTIONS (5)
  - Discomfort [Unknown]
  - Abnormal dreams [Unknown]
  - Somnolence [Unknown]
  - Hypersomnia [Unknown]
  - Loss of consciousness [Unknown]
